FAERS Safety Report 10390270 (Version 2)
Quarter: 2014Q3

REPORT INFORMATION
  Report Type: Spontaneous
  Country: US (occurrence: None)
  Receive Date: 20140814
  Receipt Date: 20140922
  Transmission Date: 20150326
  Serious: Yes (Other)
  Sender: FDA-Public Use
  Company Number: US-H14001-14-00348

PATIENT
  Age: 74 Year
  Sex: Male
  Weight: 62.9 kg

DRUGS (3)
  1. DEXAMETHASONE. [Suspect]
     Active Substance: DEXAMETHASONE
     Indication: PLASMA CELL MYELOMA
     Dosage: 40MG (1 IN 1D) INTRAVENOUS
     Route: 042
     Dates: start: 20110610
  2. CYCLOPHOSPHAMIDE. [Suspect]
     Active Substance: CYCLOPHOSPHAMIDE
     Indication: PLASMA CELL MYELOMA
     Dosage: 500MG (DAYS 1, 8, 15 AND 22) INTRAVENOUS NOT OTHERWISE SPECIFIED
     Route: 042
     Dates: start: 20110610, end: 20110701
  3. VELCADE [Suspect]
     Active Substance: BORTEZOMIB
     Indication: PLASMA CELL MYELOMA
     Dosage: DAYS 1, 3, 8 AND 10
     Route: 042
     Dates: start: 20110610, end: 20110715

REACTIONS (4)
  - Renal failure [None]
  - Hypercalcaemia [None]
  - Mental status changes [None]
  - Plasma cell myeloma [None]

NARRATIVE: CASE EVENT DATE: 20110919
